FAERS Safety Report 20346823 (Version 1)
Quarter: 2022Q1

REPORT INFORMATION
  Report Type: Spontaneous
  Country: US (occurrence: None)
  Receive Date: 20220116
  Receipt Date: 20220116
  Transmission Date: 20220423
  Serious: Yes (Disabling)
  Sender: FDA-Public Use
  Company Number: None

PATIENT
  Age: 43 Year
  Sex: Female
  Weight: 115.2 kg

DRUGS (1)
  1. BUPRENORPHINE [Suspect]
     Active Substance: BUPRENORPHINE
     Indication: Pain
     Dosage: FREQUENCY : 3 TIMES A DAY;?
     Route: 060
     Dates: start: 20120101

REACTIONS (5)
  - Therapy change [None]
  - Endodontic procedure [None]
  - Dental caries [None]
  - Dental restoration failure [None]
  - Foot operation [None]

NARRATIVE: CASE EVENT DATE: 20190605
